FAERS Safety Report 7599953-2 (Version None)
Quarter: 2011Q3

REPORT INFORMATION
  Report Type: 
  Country: None (occurrence: None)
  Receive Date: 20110711
  Receipt Date: 20110706
  Transmission Date: 20111222
  Serious: No
  Sender: FDA-Public Use
  Company Number: US-PFIZER INC-2011151823

PATIENT
  Sex: Female

DRUGS (2)
  1. ADVIL LIQUI-GELS [Suspect]
     Indication: ARTHRALGIA
     Dosage: 200 MG, 2X/DAY
     Dates: start: 20110601
  2. ADVIL LIQUI-GELS [Suspect]
     Indication: ARTHRITIS

REACTIONS (1)
  - FEELING ABNORMAL [None]
